FAERS Safety Report 7870382-7 (Version None)
Quarter: 2011Q4

REPORT INFORMATION
  Report Type: 
  Country: None (occurrence: None)
  Receive Date: 20111029
  Receipt Date: 20110216
  Transmission Date: 20120403
  Serious: No
  Sender: FDA-Public Use
  Company Number: US-AMGEN-USASP2010009585

PATIENT
  Age: 44 Year
  Sex: Female

DRUGS (2)
  1. ENBREL [Suspect]
     Indication: PSORIATIC ARTHROPATHY
     Dates: start: 20060301
  2. ENBREL [Suspect]
     Indication: PSORIASIS

REACTIONS (4)
  - DRUG INEFFECTIVE [None]
  - INJECTION SITE PAIN [None]
  - INJECTION SITE RASH [None]
  - PSORIASIS [None]
